FAERS Safety Report 19490642 (Version 1)
Quarter: 2021Q3

REPORT INFORMATION
  Report Type: Spontaneous
  Country: PT (occurrence: PT)
  Receive Date: 20210705
  Receipt Date: 20210705
  Transmission Date: 20211014
  Serious: Yes (Other)
  Sender: FDA-Public Use
  Company Number: PT-ACCORD-230318

PATIENT
  Age: 64 Year
  Sex: Male
  Weight: 70 kg

DRUGS (2)
  1. CISPLATIN. [Suspect]
     Active Substance: CISPLATIN
     Indication: BLADDER NEOPLASM
     Dosage: 90MG/500ML IV SINGLE DOSE IN 60 MINUTES (QT)
     Route: 042
     Dates: start: 20210415, end: 20210415
  2. GEMCITABINE KABI [Suspect]
     Active Substance: GEMCITABINE HYDROCHLORIDE
     Indication: BLADDER NEOPLASM
     Dosage: 1600MG/500ML IV SINGLE DOSE (QT)
     Route: 042
     Dates: start: 20210415, end: 20210415

REACTIONS (2)
  - Pruritus [Recovered/Resolved]
  - Rash [Recovered/Resolved]

NARRATIVE: CASE EVENT DATE: 20210415
